FAERS Safety Report 8439240 (Version 2)
Quarter: 2012Q4

REPORT INFORMATION
  Report Type: 
  Country: US (occurrence: None)
  Receive Date: 20120104
  Receipt Date: 20120508
  Transmission Date: 20130627
  Serious: No
  Sender: FDA-Public Use
  Company Number: 2011HGS-002801

PATIENT
  Age: 51 Year
  Sex: Female

DRUGS (11)
  1. BENLYSTA [Suspect]
     Indication: SYSTEMIC LUPUS ERYTHEMATOSUS
     Dosage: 1 IN 28 D, INTRAVENOUS DRIP
     Route: 041
     Dates: start: 20110901
  2. BENLYSTA [Suspect]
     Indication: SYSTEMIC LUPUS ERYTHEMATOSUS
     Dosage: 840 mg, 1 in 28 d, intravenous
     Route: 042
     Dates: start: 20110929
  3. PLAQUENIL (HYDROXYCHLOROQUINE SULFATE)(HYDROXYCHLOROQUINE SULFATE) [Concomitant]
  4. CELLCEPT(MYCOPHENOLATE MOFETIL)(MYCOPHENOLATE MOFETIL) [Concomitant]
  5. SYNTHROID(LEVOTHYROXINE SODIUM)(LEVOTHYROXINE SODIUM) [Concomitant]
  6. GABAPENTIN [Concomitant]
  7. BENICAR [Concomitant]
  8. CYMBALTA (ANTIDEPRESSANTS) (DULOXETINE) [Concomitant]
  9. SOMA(CARISOPRODOL)(CARISOPRODOL) [Concomitant]
  10. BENADRYL (DIPHENHYDRRMINE HYDROCHLORIDE) (DIPENHYDRAMINE HYDROHCLORIDE) [Concomitant]
  11. SOLUMEDROL (METHYLPREDNISOLONE SODIUM SUCCINATE) (METHYLPREDNISOLONE SODIUM SUCCINATE) [Concomitant]

REACTIONS (1)
  - Nausea [None]
